FAERS Safety Report 6677299-4 (Version None)
Quarter: 2010Q2

REPORT INFORMATION
  Report Type: 
  Country: None (occurrence: None)
  Receive Date: 20100408
  Receipt Date: 20100408
  Transmission Date: 20101027
  Serious: Yes (Other)
  Sender: FDA-Public Use
  Company Number: None

PATIENT
  Sex: Female

DRUGS (1)
  1. WARFARIN SODIUM [Suspect]
     Indication: ATRIAL FIBRILLATION
     Dosage: ONCE TO TWICE QD PO
     Route: 048
     Dates: start: 20070101

REACTIONS (3)
  - COAGULOPATHY [None]
  - INTERNATIONAL NORMALISED RATIO ABNORMAL [None]
  - PROTHROMBIN TIME ABNORMAL [None]
